FAERS Safety Report 23169857 (Version 1)
Quarter: 2023Q4

REPORT INFORMATION
  Report Type: Spontaneous
  Country: JP (occurrence: JP)
  Receive Date: 20231110
  Receipt Date: 20231110
  Transmission Date: 20240110
  Serious: Yes (Other)
  Sender: FDA-Public Use
  Company Number: JP-CHUGAI-2023039255

PATIENT
  Age: 6 Decade
  Sex: Male

DRUGS (2)
  1. ALECENSA [Suspect]
     Active Substance: ALECTINIB HYDROCHLORIDE
     Indication: Lung neoplasm malignant
     Dosage: UNK
     Route: 065
  2. BRIGATINIB [Concomitant]
     Active Substance: BRIGATINIB
     Indication: Lung neoplasm malignant
     Dosage: UNK

REACTIONS (1)
  - Neoplasm progression [Unknown]
